FAERS Safety Report 24403002 (Version 1)
Quarter: 2024Q4

REPORT INFORMATION
  Report Type: Report from Study
  Country: IN (occurrence: IN)
  Receive Date: 20241007
  Receipt Date: 20241007
  Transmission Date: 20250115
  Serious: No
  Sender: ROCHE
  Company Number: IN-ROCHE-3402617

PATIENT
  Age: 81 Year
  Sex: Male

DRUGS (2)
  1. GAZYVA [Suspect]
     Active Substance: OBINUTUZUMAB
     Indication: Chronic lymphocytic leukaemia
     Dosage: INJECTION
     Route: 042
     Dates: start: 20230729
  2. GAZYVA [Suspect]
     Active Substance: OBINUTUZUMAB
     Route: 042

REACTIONS (2)
  - Off label use [Unknown]
  - No adverse event [Unknown]
